FAERS Safety Report 5701554-5 (Version None)
Quarter: 2008Q2

REPORT INFORMATION
  Report Type: 
  Country: None (occurrence: None)
  Receive Date: 20080408
  Receipt Date: 20080331
  Transmission Date: 20081010
  Serious: Yes (Hospitalization)
  Sender: FDA-Public Use
  Company Number: WAES 0802USA03735

PATIENT
  Age: 68 Year
  Sex: Male
  Weight: 76.6579 kg

DRUGS (8)
  1. CAP VORINOSTAT UNK [Suspect]
     Dosage: 400 MG DAILY PO
     Route: 048
     Dates: start: 20080129, end: 20080211
  2. DECITABINE [Suspect]
     Dosage: 39 MG DAILY I
     Route: 042
     Dates: start: 20080129, end: 20080202
  3. DECITABINE [Suspect]
     Dosage: 39 MG DAILY I
     Route: 042
     Dates: start: 20080229, end: 20080303
  4. ASCORBIC ACID [Concomitant]
  5. CYANOCOBALAMIN [Concomitant]
  6. FOLIC ACID [Concomitant]
  7. GARLIC [Concomitant]
  8. VITAMINIS (UNSPECIFIED) [Concomitant]

REACTIONS (10)
  - ANAEMIA [None]
  - CHEST X-RAY ABNORMAL [None]
  - CHILLS [None]
  - CONSTIPATION [None]
  - FEBRILE NEUTROPENIA [None]
  - HEADACHE [None]
  - INSOMNIA [None]
  - PHARYNGOLARYNGEAL PAIN [None]
  - PLEURAL EFFUSION [None]
  - RHINORRHOEA [None]
